FAERS Safety Report 5389186-2 (Version None)
Quarter: 2007Q3

REPORT INFORMATION
  Report Type: 
  Country: None (occurrence: None)
  Receive Date: 20070713
  Receipt Date: 20070705
  Transmission Date: 20080115
  Serious: Yes (Hospitalization)
  Sender: FDA-Public Use
  Company Number: 2007BI012367

PATIENT
  Age: 71 Year
  Sex: Male

DRUGS (6)
  1. AVONEX [Suspect]
     Indication: MULTIPLE SCLEROSIS
     Dosage: IM
     Route: 030
     Dates: start: 19960701
  2. AVONEX [Suspect]
     Indication: MULTIPLE SCLEROSIS
     Dosage: 30 UG; QW; IM
     Route: 030
  3. TEGRETOL [Concomitant]
  4. DILANTIN KAPSEAL [Concomitant]
  5. SPIRIVA [Concomitant]
  6. ADVAIR DISKUS 100/50 [Concomitant]

REACTIONS (7)
  - BALANCE DISORDER [None]
  - CHRONIC OBSTRUCTIVE PULMONARY DISEASE [None]
  - CLAVICLE FRACTURE [None]
  - CONFUSIONAL STATE [None]
  - FALL [None]
  - PAIN [None]
  - PNEUMONIA [None]
